FAERS Safety Report 16363841 (Version 2)
Quarter: 2019Q2

REPORT INFORMATION
  Report Type: Spontaneous
  Country: SE (occurrence: SE)
  Receive Date: 20190528
  Receipt Date: 20190603
  Transmission Date: 20190711
  Serious: Yes (Other)
  Sender: FDA-Public Use
  Company Number: SE-MYLANLABS-2019M1050001

PATIENT
  Sex: Male
  Weight: 90 kg

DRUGS (1)
  1. DICLOFENAC [Suspect]
     Active Substance: DICLOFENAC
     Indication: ROTATOR CUFF SYNDROME
     Dosage: 1 DOSAGE FORM, BID (2 DF,QD),50 MILLIGRAM,DOSERING: 2 PER DYGN
     Route: 065
     Dates: start: 2013, end: 2016

REACTIONS (3)
  - Irritability [Recovered/Resolved]
  - Anger [Recovered/Resolved]
  - Personality change [Recovered/Resolved]
